FAERS Safety Report 5443630-0 (Version None)
Quarter: 2007Q3

REPORT INFORMATION
  Report Type: 
  Country: None (occurrence: None)
  Receive Date: 20070905
  Receipt Date: 20070829
  Transmission Date: 20080115
  Serious: Yes (Other)
  Sender: FDA-Public Use
  Company Number: PHBS2007NL14131

PATIENT
  Sex: Female

DRUGS (1)
  1. SANDOSTATIN [Suspect]
     Dosage: 50 MG, TID
     Route: 058

REACTIONS (2)
  - DRUG DEPENDENCE [None]
  - DRUG WITHDRAWAL HEADACHE [None]
